FAERS Safety Report 23957322 (Version 3)
Quarter: 2024Q3

REPORT INFORMATION
  Report Type: Spontaneous
  Country: US (occurrence: US)
  Receive Date: 20240610
  Receipt Date: 20240703
  Transmission Date: 20241017
  Serious: No
  Sender: SANOFI AVENTIS
  Company Number: US-SA-2024SA146324

PATIENT
  Age: 65 Year
  Sex: Female

DRUGS (2)
  1. DUPIXENT [Suspect]
     Active Substance: DUPILUMAB
     Indication: Dermatitis atopic
     Dosage: 300 MG, QOW
     Route: 058
  2. PRAVASTATIN [Concomitant]
     Active Substance: PRAVASTATIN
     Indication: Sciatic nerve injury
     Dosage: UNK

REACTIONS (10)
  - Dry skin [Not Recovered/Not Resolved]
  - Visual impairment [Unknown]
  - Hypoaesthesia [Unknown]
  - Initial insomnia [Unknown]
  - Dizziness [Unknown]
  - Myalgia [Unknown]
  - Skin exfoliation [Not Recovered/Not Resolved]
  - Dry eye [Unknown]
  - Injection site reaction [Unknown]
  - Therapeutic response decreased [Unknown]
